FAERS Safety Report 20734260 (Version 3)
Quarter: 2022Q2

REPORT INFORMATION
  Report Type: Spontaneous
  Country: SE (occurrence: SE)
  Receive Date: 20220421
  Receipt Date: 20220506
  Transmission Date: 20220721
  Serious: Yes (Death, Hospitalization, Other)
  Sender: FDA-Public Use
  Company Number: SE-SAMSUNG BIOEPIS-SB-2022-06309

PATIENT
  Age: 75 Year
  Sex: Female

DRUGS (4)
  1. METHOTREXATE [Suspect]
     Active Substance: METHOTREXATE
     Indication: Neurosarcoidosis
     Dosage: UNK, UNKNOWN, MORE THAN SEVEN YEARS
     Route: 065
  2. METHOTREXATE [Suspect]
     Active Substance: METHOTREXATE
     Dosage: UNK
     Route: 065
  3. REMICADE [Suspect]
     Active Substance: INFLIXIMAB
     Indication: Neurosarcoidosis
     Dosage: UNK, UNKNOWN, MORE THAN SEVEN YEARS
     Route: 065
  4. REMICADE [Suspect]
     Active Substance: INFLIXIMAB
     Dosage: UNK
     Route: 042

REACTIONS (7)
  - Pneumonia bacterial [Fatal]
  - COVID-19 [Fatal]
  - Epstein-Barr virus associated lymphoproliferative disorder [Fatal]
  - Hodgkin^s disease [Fatal]
  - Neurosarcoidosis [Fatal]
  - Off label use [Fatal]
  - Lymphoproliferative disorder [Unknown]
